FAERS Safety Report 8892669 (Version 1)
Quarter: 2012Q4

REPORT INFORMATION
  Report Type: Spontaneous
  Country: US (occurrence: None)
  Receive Date: 20121105
  Receipt Date: 20121105
  Transmission Date: 20130627
  Serious: Yes (Other)
  Sender: FDA-Public Use
  Company Number: None

PATIENT
  Age: 68 Year
  Sex: Female
  Weight: 48.08 kg

DRUGS (1)
  1. BACTRIM [Suspect]
     Indication: INSECT BITE NOS
     Dosage: 1 pill 2x
     Dates: start: 20120926, end: 20120928

REACTIONS (2)
  - Angioedema [None]
  - Diarrhoea [None]
